FAERS Safety Report 9275235 (Version 1)
Quarter: 2013Q2

REPORT INFORMATION
  Report Type: Spontaneous
  Country: TR (occurrence: TR)
  Receive Date: 20130506
  Receipt Date: 20130506
  Transmission Date: 20140414
  Serious: Yes (Hospitalization)
  Sender: FDA-Public Use
  Company Number: TR-BRACCO-000049

PATIENT
  Age: 46 Year
  Sex: Male

DRUGS (2)
  1. BARIUM SULFATE [Suspect]
     Indication: BARIUM ENEMA
     Route: 054
  2. BARIUM SULFATE [Suspect]
     Indication: X-RAY
     Route: 048

REACTIONS (2)
  - Appendicitis [Recovered/Resolved]
  - Barium impaction [Recovered/Resolved]
